FAERS Safety Report 9244305 (Version 2)
Quarter: 2013Q2

REPORT INFORMATION
  Report Type: Spontaneous
  Country: US (occurrence: US)
  Receive Date: 20130418
  Receipt Date: 20130424
  Transmission Date: 20140414
  Serious: Yes (Other)
  Sender: FDA-Public Use
  Company Number: US-RB-052583-13

PATIENT
  Age: 49 Year
  Sex: Female

DRUGS (2)
  1. MUCINEX D [Suspect]
     Indication: HYPERSENSITIVITY
     Dosage: TOOK A TABLET ON 29-MAR-2013 IN THE MORNING.
     Route: 048
     Dates: start: 20130329
  2. MULTIVITAMIN [Concomitant]
     Indication: PRODUCT USED FOR UNKNOWN INDICATION
     Dosage: TAKEN ONCE A DAY.

REACTIONS (9)
  - Blood pressure increased [Recovered/Resolved]
  - Palpitations [Recovered/Resolved]
  - Hyperhidrosis [Recovered/Resolved]
  - Pallor [Recovered/Resolved]
  - Headache [Recovered/Resolved]
  - Hyperhidrosis [Unknown]
  - Dizziness [Unknown]
  - Malaise [Unknown]
  - Nausea [Recovered/Resolved]
